FAERS Safety Report 4783944-0 (Version None)
Quarter: 2005Q3

REPORT INFORMATION
  Report Type: 
  Country: None (occurrence: None)
  Receive Date: 20050928
  Receipt Date: 20050914
  Transmission Date: 20060218
  Serious: Yes (Hospitalization)
  Sender: FDA-Public Use
  Company Number: 021#3#2005-00001

PATIENT
  Age: 78 Year
  Sex: Male

DRUGS (1)
  1. ALPROSTADIL [Suspect]
     Indication: CARDIOVASCULAR DISORDER
     Dosage: 1.40 MCG(20 MCG 2 IN 1 DAY (S), INTRAVENOUS DRIP
     Route: 041

REACTIONS (2)
  - ERYTHEMA [None]
  - INFUSION SITE ERYTHEMA [None]
